FAERS Safety Report 9454778 (Version 1)
Quarter: 2013Q3

REPORT INFORMATION
  Report Type: Spontaneous
  Country: NL (occurrence: NL)
  Receive Date: 20130812
  Receipt Date: 20130812
  Transmission Date: 20140515
  Serious: Yes (Hospitalization, Other)
  Sender: FDA-Public Use
  Company Number: NL-PFIZER INC-2013227116

PATIENT
  Age: 72 Year
  Sex: Male
  Weight: 106 kg

DRUGS (1)
  1. CLINDAMYCIN HCL [Suspect]
     Indication: ARTHRITIS BACTERIAL
     Dosage: 2 X 300 MG, 3X/DAY
     Dates: start: 20130611, end: 20130617

REACTIONS (6)
  - Delirium [Recovered/Resolved]
  - Confusional state [Recovered/Resolved]
  - Fatigue [Recovered/Resolved]
  - Poor quality sleep [Recovered/Resolved]
  - Malaise [Recovered/Resolved]
  - Dizziness [Recovered/Resolved]
